FAERS Safety Report 9715601 (Version 1)
Quarter: 2013Q4

REPORT INFORMATION
  Report Type: Report from Study
  Country: ES (occurrence: ES)
  Receive Date: 20131127
  Receipt Date: 20131127
  Transmission Date: 20140711
  Serious: Yes (Hospitalization)
  Sender: FDA-Public Use
  Company Number: ES-ROCHE-1308645

PATIENT
  Age: 25 Year
  Sex: Female

DRUGS (7)
  1. MYCOPHENOLATE MOFETIL [Suspect]
     Indication: RENAL TRANSPLANT
     Route: 065
  2. VALGANCICLOVIR [Suspect]
     Indication: RENAL TRANSPLANT
     Route: 065
  3. GANCICLOVIR [Suspect]
     Indication: RENAL TRANSPLANT
     Route: 050
  4. TIMOGLOBULINA [Concomitant]
     Route: 065
  5. PREDNISONE [Concomitant]
     Route: 065
  6. TACROLIMUS [Concomitant]
     Dosage: LEVEL : 12-14 NG/ML
     Route: 065
  7. FOSCARNET [Concomitant]

REACTIONS (2)
  - Cytomegalovirus gastrointestinal infection [Recovering/Resolving]
  - Encephalitis cytomegalovirus [Unknown]
